FAERS Safety Report 6044049-4 (Version None)
Quarter: 2009Q1

REPORT INFORMATION
  Report Type: 
  Country: None (occurrence: None)
  Receive Date: 20090120
  Receipt Date: 20090112
  Transmission Date: 20090719
  Serious: No
  Sender: FDA-Public Use
  Company Number: DE-AVENTIS-200910110DE

PATIENT
  Sex: Female

DRUGS (1)
  1. ARAVA [Suspect]
     Indication: DRUG USE FOR UNKNOWN INDICATION
     Dosage: DOSE: NOT REPORTED
     Route: 048
     Dates: start: 20080401, end: 20080601

REACTIONS (1)
  - DRUG EXPOSURE BEFORE PREGNANCY [None]
